FAERS Safety Report 6194128-6 (Version None)
Quarter: 2009Q2

REPORT INFORMATION
  Report Type: 
  Country: None (occurrence: None)
  Receive Date: 20090518
  Receipt Date: 20090511
  Transmission Date: 20091009
  Serious: Yes (Hospitalization)
  Sender: FDA-Public Use
  Company Number: PHHO2009DE04535

PATIENT
  Sex: Male
  Weight: 75 kg

DRUGS (10)
  1. RAD 666 RAD+TAB [Suspect]
     Indication: HEPATIC CANCER METASTATIC
     Dosage: 5 MG, QD
     Route: 048
     Dates: start: 20090306, end: 20090401
  2. RAD 666 RAD+TAB [Suspect]
     Dosage: UNK
     Dates: end: 20090430
  3. AVASTIN COMP-AVA+ [Suspect]
     Indication: HEPATIC CANCER METASTATIC
     Dosage: UNK
     Dates: end: 20090401
  4. RADIATION THERAPY [Suspect]
  5. PANTOZOL [Concomitant]
  6. HYDROCHLOROTHIAZIDE [Concomitant]
     Dosage: UNK
     Dates: start: 20090320, end: 20090430
  7. RAMIPRIL [Concomitant]
  8. BISOPROLOL [Concomitant]
     Indication: HYPERTENSION
     Dosage: 5 MG, QD
  9. TRAMADOL HCL [Concomitant]
     Indication: PAIN
     Dosage: 75 MG, TID
  10. TENOFOVIR [Concomitant]
     Indication: HEPATITIS B VIRUS TEST
     Dosage: 245 MG, QD

REACTIONS (7)
  - ANOREXIA [None]
  - C-REACTIVE PROTEIN INCREASED [None]
  - CHEST PAIN [None]
  - FLUID INTAKE REDUCED [None]
  - NECROTISING OESOPHAGITIS [None]
  - RENAL FAILURE ACUTE [None]
  - WEIGHT DECREASED [None]
